FAERS Safety Report 13264187 (Version 1)
Quarter: 2017Q1

REPORT INFORMATION
  Report Type: Spontaneous
  Country: US (occurrence: US)
  Receive Date: 20170222
  Receipt Date: 20170222
  Transmission Date: 20170428
  Serious: Yes (Other)
  Sender: FDA-Public Use
  Company Number: None

PATIENT
  Age: 19 Year
  Sex: Female

DRUGS (3)
  1. LAMOTRIGINE XR 25MG [Suspect]
     Active Substance: LAMOTRIGINE
     Indication: PARTIAL SEIZURES
     Route: 048
     Dates: start: 2012
  2. LAMOTRIGINE XR 100MG [Suspect]
     Active Substance: LAMOTRIGINE
     Route: 048
  3. LAMOTRIGINE XR 200MG [Suspect]
     Active Substance: LAMOTRIGINE
     Dosage: 100 MG (2 TABS) DAILY PO
     Route: 048

REACTIONS (2)
  - Seizure [None]
  - Product substitution issue [None]
